FAERS Safety Report 16248218 (Version 1)
Quarter: 2019Q2

REPORT INFORMATION
  Report Type: Spontaneous
  Country: US (occurrence: US)
  Receive Date: 20190428
  Receipt Date: 20190428
  Transmission Date: 20190711
  Serious: No
  Sender: FDA-Public Use
  Company Number: US-SENTYNL THERAPEUTICS, INC.  -2066360

PATIENT
  Age: 56 Year
  Sex: Female

DRUGS (6)
  1. LEVORPHANOL TARTRATE. [Suspect]
     Active Substance: LEVORPHANOL TARTRATE
     Indication: NEUROPATHY PERIPHERAL
     Route: 048
     Dates: start: 201702
  2. LYRICA [Concomitant]
     Active Substance: PREGABALIN
  3. PLAVIX [Concomitant]
     Active Substance: CLOPIDOGREL BISULFATE
  4. AMITIZA [Concomitant]
     Active Substance: LUBIPROSTONE
  5. ASPIRIN. [Concomitant]
     Active Substance: ASPIRIN
  6. AMITRIPTYLINE HYDROCHLORIDE. [Concomitant]
     Active Substance: AMITRIPTYLINE HYDROCHLORIDE

REACTIONS (8)
  - Pain [Unknown]
  - Product dose omission [Unknown]
  - Tooth disorder [Unknown]
  - Insomnia [Unknown]
  - Withdrawal syndrome [Unknown]
  - Rhinorrhoea [Unknown]
  - Dry mouth [Unknown]
  - Weight increased [Unknown]
